FAERS Safety Report 5473601-X (Version None)
Quarter: 2007Q4

REPORT INFORMATION
  Report Type: 
  Country: None (occurrence: None)
  Receive Date: 20071001
  Receipt Date: 20040504
  Transmission Date: 20080405
  Serious: Yes (Hospitalization, Other)
  Sender: FDA-Public Use
  Company Number: US-PFIZER INC-2004210428US

PATIENT
  Sex: Female

DRUGS (5)
  1. DEPO-MEDROL [Suspect]
  2. BOTOX [Suspect]
  3. OXYCONTIN [Concomitant]
  4. PROZAC [Concomitant]
  5. CELEBREX [Concomitant]

REACTIONS (5)
  - COGNITIVE DISORDER [None]
  - DYSARTHRIA [None]
  - MOVEMENT DISORDER [None]
  - PSYCHOTIC DISORDER [None]
  - SUICIDE ATTEMPT [None]
